FAERS Safety Report 4804641-9 (Version None)
Quarter: 2005Q4

REPORT INFORMATION
  Report Type: 
  Country: None (occurrence: None)
  Receive Date: 20051017
  Receipt Date: 20051007
  Transmission Date: 20060501
  Serious: Yes (Hospitalization)
  Sender: FDA-Public Use
  Company Number: 2005131229

PATIENT
  Age: 56 Year
  Sex: Male
  Weight: 78 kg

DRUGS (10)
  1. NORVASC [Suspect]
     Indication: HYPERTENSION
     Dosage: 10 MG (5 MG, 2 IN 1 D), ORAL
     Route: 048
     Dates: start: 20050908, end: 20050910
  2. ATELEC (CILNIDIPINE) [Suspect]
     Indication: HYPERTENSION
     Dosage: 10 MG (10 MG, 1 IN 1 D), ORAL
     Route: 048
     Dates: start: 20050728, end: 20050908
  3. NIVADIL (NILVADIPINE) [Suspect]
     Indication: HYPERTENSION
     Dosage: 8 MG (4MG, 2 IN 1 D), ORAL
     Route: 048
     Dates: start: 20050728, end: 20050908
  4. NICARDIPINE HCL [Suspect]
     Indication: HYPERTENSION
     Dosage: 80MG (40 MG, 2 IN 1 D), ORAL
     Route: 048
     Dates: start: 20050728, end: 20050908
  5. DOXAZOSIN MESYLATE [Concomitant]
  6. DIOVAN [Concomitant]
  7. BLOPRESS (CANDESARTAN CILEXETIL) [Concomitant]
  8. ADETPHOS (ADENOSAINE TRIPHOSPHATE, DISODIUM SALT) [Concomitant]
  9. MINIPRES (PRAZOSIN) [Concomitant]
  10. METHYLCOBAL (MECOBALAMIN) [Concomitant]

REACTIONS (9)
  - BLOOD GLUCOSE INCREASED [None]
  - DYSGEUSIA [None]
  - GINGIVAL HYPERTROPHY [None]
  - HYPERGLYCAEMIA [None]
  - HYPOAESTHESIA [None]
  - MALAISE [None]
  - ORAL INTAKE REDUCED [None]
  - STOMATITIS [None]
  - THIRST [None]
